FAERS Safety Report 9858149 (Version 3)
Quarter: 2014Q4

REPORT INFORMATION
  Report Type: Spontaneous
  Country: US (occurrence: US)
  Receive Date: 20140131
  Receipt Date: 20141031
  Transmission Date: 20150529
  Serious: No
  Sender: FDA-Public Use
  Company Number: US-BAYER-2014-016333

PATIENT
  Age: 25 Year
  Sex: Female
  Weight: 71.2 kg

DRUGS (1)
  1. MIRENA [Suspect]
     Active Substance: LEVONORGESTREL
     Indication: CONTRACEPTION
     Dosage: 20 MCG/24HR, CONT
     Route: 015
     Dates: start: 201304, end: 20140101

REACTIONS (3)
  - Anaemia [None]
  - Drug ineffective [None]
  - Pregnancy with contraceptive device [Not Recovered/Not Resolved]

NARRATIVE: CASE EVENT DATE: 201308
